FAERS Safety Report 11152258 (Version 1)
Quarter: 2015Q2

REPORT INFORMATION
  Report Type: Spontaneous
  Country: US (occurrence: US)
  Receive Date: 20150601
  Receipt Date: 20150601
  Transmission Date: 20150821
  Serious: No
  Sender: FDA-Public Use
  Company Number: US-SHIRE-US201504763

PATIENT
  Age: 15 Year
  Sex: Male
  Weight: 98 kg

DRUGS (9)
  1. STERILE WATER [Concomitant]
     Active Substance: WATER
     Indication: MEDICATION DILUTION
     Dosage: 5 ML, UNKNOWN
     Route: 042
     Dates: start: 20141218
  2. SODIUM CHLORIDE. [Concomitant]
     Active Substance: SODIUM CHLORIDE
     Indication: CATHETER MANAGEMENT
     Dosage: (0.9% )1-10 ML UNKNOWN
     Route: 042
     Dates: start: 20141218
  3. FIRAZYR [Concomitant]
     Active Substance: ICATIBANT ACETATE
     Indication: HEREDITARY ANGIOEDEMA
     Dosage: 30 MG, AS REQ^D
     Route: 058
  4. EPIPEN [Concomitant]
     Active Substance: EPINEPHRINE
     Indication: PRODUCT USED FOR UNKNOWN INDICATION
     Dosage: 0.3 MG, AS REQ^D
     Route: 030
     Dates: start: 20141218
  5. CINRYZE [Concomitant]
     Active Substance: HUMAN C1-ESTERASE INHIBITOR
     Indication: HEREDITARY ANGIOEDEMA
     Dosage: 1000 UNITS, OTHER (2 TIMES PER WEEK)
     Route: 042
  6. VYVANSE [Suspect]
     Active Substance: LISDEXAMFETAMINE DIMESYLATE
     Dosage: 20 MG, 1X/DAY:QD (Q PM)
     Route: 048
     Dates: start: 20140213
  7. VYVANSE [Suspect]
     Active Substance: LISDEXAMFETAMINE DIMESYLATE
     Indication: PRODUCT USED FOR UNKNOWN INDICATION
     Dosage: 50 MG, 1X/DAY:QD (Q AM)
     Route: 048
     Dates: start: 20140213
  8. CINRYZE [Concomitant]
     Active Substance: HUMAN C1-ESTERASE INHIBITOR
     Indication: PROPHYLAXIS
  9. LMX                                /00033401/ [Concomitant]
     Indication: PREMEDICATION
     Dosage: UNK (4%), UNKNOWN
     Route: 061
     Dates: start: 20141218

REACTIONS (2)
  - Inappropriate schedule of drug administration [Not Recovered/Not Resolved]
  - No adverse event [Not Recovered/Not Resolved]

NARRATIVE: CASE EVENT DATE: 20140213
